FAERS Safety Report 9326159 (Version 2)
Quarter: 2013Q2

REPORT INFORMATION
  Report Type: Report from Study
  Country: IT (occurrence: IT)
  Receive Date: 20130604
  Receipt Date: 20130612
  Transmission Date: 20140414
  Serious: Yes (Other)
  Sender: FDA-Public Use
  Company Number: IT-BAXTER-2013BAX020252

PATIENT
  Age: 11 Year
  Sex: Male

DRUGS (2)
  1. FEIBA [Suspect]
     Indication: PROPHYLAXIS
     Route: 065
     Dates: start: 2011, end: 2011
  2. FEIBA [Suspect]
     Route: 042

REACTIONS (2)
  - Haemarthrosis [Not Recovered/Not Resolved]
  - Haemorrhage [Recovered/Resolved]
